FAERS Safety Report 8169869-1 (Version None)
Quarter: 2012Q1

REPORT INFORMATION
  Report Type: 
  Country: None (occurrence: None)
  Receive Date: 20120222
  Receipt Date: 20120207
  Transmission Date: 20120608
  Serious: Yes (Hospitalization)
  Sender: FDA-Public Use
  Company Number: VENL20120001

PATIENT
  Age: 34 Year
  Sex: Female

DRUGS (2)
  1. ACETAMINOPHEN [Suspect]
     Indication: PRODUCT USED FOR UNKNOWN INDICATION
     Dosage: UP TO 20 GRAMS, ORAL
     Route: 048
  2. VENLAFAXINE HCL [Suspect]
     Indication: PRODUCT USED FOR UNKNOWN INDICATION
     Dosage: UP TO 3.75 GRAMS IR AND 7.5 GRAMS
     Route: 048

REACTIONS (15)
  - UNRESPONSIVE TO STIMULI [None]
  - CONVULSION [None]
  - RENAL FAILURE ACUTE [None]
  - SEROTONIN SYNDROME [None]
  - TROPONIN I INCREASED [None]
  - PULMONARY OEDEMA [None]
  - CARDIOMYOPATHY [None]
  - MYDRIASIS [None]
  - CONTINUOUS HAEMODIAFILTRATION [None]
  - HYPOTENSION [None]
  - PNEUMONIA [None]
  - MULTIPLE DRUG OVERDOSE [None]
  - RHABDOMYOLYSIS [None]
  - HEART RATE INCREASED [None]
  - SUBENDOCARDIAL ISCHAEMIA [None]
